FAERS Safety Report 26198928 (Version 1)
Quarter: 2025Q4

REPORT INFORMATION
  Report Type: Spontaneous
  Country: EU (occurrence: EU)
  Receive Date: 20251225
  Receipt Date: 20251225
  Transmission Date: 20260118
  Serious: Yes (Hospitalization, Other)
  Sender: AUROBINDO
  Company Number: EU-AFSSAPS-AN2025001577

PATIENT
  Age: 70 Year
  Sex: Male

DRUGS (7)
  1. FLUOXETINE HYDROCHLORIDE [Interacting]
     Active Substance: FLUOXETINE HYDROCHLORIDE
     Indication: Depression
     Dosage: 10 MILLIGRAM, ONCE A DAY
     Route: 061
     Dates: end: 20251123
  2. CYAMEMAZINE [Interacting]
     Active Substance: CYAMEMAZINE
     Indication: Anxiety
     Dosage: 2 MILLIGRAM, ONCE A DAY
     Route: 061
     Dates: end: 20251123
  3. LOXAPINE SUCCINATE [Interacting]
     Active Substance: LOXAPINE SUCCINATE
     Indication: Anxiety
     Dosage: 30 MILLIGRAM, ONCE A DAY
     Route: 061
     Dates: end: 20251123
  4. TRIHEXYPHENIDYL HYDROCHLORIDE [Interacting]
     Active Substance: TRIHEXYPHENIDYL HYDROCHLORIDE
     Indication: Salivary hypersecretion
     Dosage: 1 DOSAGE FORM, ONCE A DAY
     Route: 061
     Dates: end: 20251123
  5. MIANSERIN HYDROCHLORIDE [Concomitant]
     Active Substance: MIANSERIN HYDROCHLORIDE
     Indication: Product used for unknown indication
     Dosage: 30 MILLIGRAM, ONCE A DAY
     Route: 061
  6. DIAZEPAM [Concomitant]
     Active Substance: DIAZEPAM
     Indication: Product used for unknown indication
     Dosage: 40 MILLIGRAM, ONCE A DAY
     Route: 061
  7. ZOLPIDEM [Concomitant]
     Active Substance: ZOLPIDEM TARTRATE
     Indication: Product used for unknown indication
     Dosage: 10 MILLIGRAM, ONCE A DAY
     Route: 061

REACTIONS (3)
  - Urinary retention [Recovered/Resolved]
  - Acute kidney injury [Recovered/Resolved]
  - Drug interaction [Recovered/Resolved]

NARRATIVE: CASE EVENT DATE: 20251123
